FAERS Safety Report 24668266 (Version 1)
Quarter: 2024Q4

REPORT INFORMATION
  Report Type: Spontaneous
  Country: AE (occurrence: AE)
  Receive Date: 20241127
  Receipt Date: 20241127
  Transmission Date: 20250115
  Serious: Yes (Other)
  Sender: CHEPLAPHARM
  Company Number: AE-CHEPLA-2024014886

PATIENT
  Age: 44 Year
  Sex: Male

DRUGS (11)
  1. OLANZAPINE [Suspect]
     Active Substance: OLANZAPINE
     Indication: Schizophrenia
     Dosage: AT BEDTIME?DAILY DOSE: 10 MILLIGRAM
  2. ARIPIPRAZOLE [Suspect]
     Active Substance: ARIPIPRAZOLE
     Dosage: 10 MG TWICE DAILY BID?DAILY DOSE: 20 MILLIGRAM
     Route: 048
  3. ARIPIPRAZOLE [Suspect]
     Active Substance: ARIPIPRAZOLE
     Dosage: 30 MG OD?DAILY DOSE: 30 MILLIGRAM
     Route: 048
  4. HALOPERIDOL [Suspect]
     Active Substance: HALOPERIDOL
  5. HALOPERIDOL [Suspect]
     Active Substance: HALOPERIDOL
     Dosage: BID?DAILY DOSE: 30 MILLIGRAM
  6. HALOPERIDOL [Suspect]
     Active Substance: HALOPERIDOL
     Dosage: BID?DAILY DOSE: 20 MILLIGRAM
  7. PROCYCLIDINE [Suspect]
     Active Substance: PROCYCLIDINE
     Dosage: BID ?DAILY DOSE: 10 MILLIGRAM
  8. RISPERIDONE [Suspect]
     Active Substance: RISPERIDONE
     Dosage: BID?DAILY DOSE: 8 MILLIGRAM
  9. VALPROIC ACID [Suspect]
     Active Substance: VALPROIC ACID
     Dosage: BID?DAILY DOSE: 1000 MILLIGRAM
  10. QUETIAPINE [Suspect]
     Active Substance: QUETIAPINE
     Dosage: HS
  11. QUETIAPINE [Suspect]
     Active Substance: QUETIAPINE
     Dosage: HS

REACTIONS (4)
  - Hallucination, auditory [Not Recovered/Not Resolved]
  - Persecutory delusion [Unknown]
  - Aggression [Unknown]
  - Agitation [Unknown]
